FAERS Safety Report 18251416 (Version 2)
Quarter: 2021Q1

REPORT INFORMATION
  Report Type: Spontaneous
  Country: US (occurrence: US)
  Receive Date: 20200910
  Receipt Date: 20210331
  Transmission Date: 20210419
  Serious: Yes (Death, Hospitalization, Other)
  Sender: FDA-Public Use
  Company Number: US-ASTRAZENECA-2020SF12808

PATIENT
  Age: 725 Month
  Sex: Male

DRUGS (28)
  1. PRILOSEC [Suspect]
     Active Substance: OMEPRAZOLE MAGNESIUM
     Indication: GASTROOESOPHAGEAL REFLUX DISEASE
     Route: 048
     Dates: start: 199001, end: 201904
  2. PROTONIX [Suspect]
     Active Substance: PANTOPRAZOLE SODIUM
     Indication: GASTROOESOPHAGEAL REFLUX DISEASE
     Route: 065
     Dates: start: 2020
  3. MAALOX ANTACID [Concomitant]
     Active Substance: ALUMINUM HYDROXIDE\DIMETHICONE\MAGNESIUM HYDROXIDE
  4. NITROGLYCERIN. [Concomitant]
     Active Substance: NITROGLYCERIN
  5. PRILOSEC [Suspect]
     Active Substance: OMEPRAZOLE MAGNESIUM
     Indication: GASTROOESOPHAGEAL REFLUX DISEASE
     Dosage: GENERIC
     Route: 065
     Dates: end: 2019
  6. PROTONIX [Suspect]
     Active Substance: PANTOPRAZOLE SODIUM
     Indication: GASTROOESOPHAGEAL REFLUX DISEASE
     Dosage: GENERIC
     Route: 065
     Dates: start: 2020
  7. ZANTAC [Concomitant]
     Active Substance: RANITIDINE HYDROCHLORIDE
  8. TAMSULOSIN [Concomitant]
     Active Substance: TAMSULOSIN
  9. FENTANYL. [Concomitant]
     Active Substance: FENTANYL
  10. VENTOLIN [Concomitant]
     Active Substance: ALBUTEROL SULFATE
  11. NEXIUM [Suspect]
     Active Substance: ESOMEPRAZOLE MAGNESIUM
     Indication: GASTROOESOPHAGEAL REFLUX DISEASE
     Route: 048
     Dates: start: 199001, end: 201904
  12. NEXIUM [Suspect]
     Active Substance: ESOMEPRAZOLE MAGNESIUM
     Indication: GASTROOESOPHAGEAL REFLUX DISEASE
     Route: 048
     Dates: start: 20130320
  13. PRILOSEC [Suspect]
     Active Substance: OMEPRAZOLE MAGNESIUM
     Indication: GASTROOESOPHAGEAL REFLUX DISEASE
     Dosage: GENERIC
     Route: 065
     Dates: start: 20190320
  14. NOVOLOG [Concomitant]
     Active Substance: INSULIN ASPART
  15. FUROSEMIDE. [Concomitant]
     Active Substance: FUROSEMIDE
  16. NEXIUM [Suspect]
     Active Substance: ESOMEPRAZOLE MAGNESIUM
     Indication: GASTROOESOPHAGEAL REFLUX DISEASE
     Route: 048
     Dates: start: 2001, end: 2019
  17. PREVACID [Suspect]
     Active Substance: LANSOPRAZOLE
     Indication: GASTROOESOPHAGEAL REFLUX DISEASE
     Route: 065
     Dates: start: 1995, end: 2019
  18. EZETIMIBE. [Concomitant]
     Active Substance: EZETIMIBE
  19. PRILOSEC [Suspect]
     Active Substance: OMEPRAZOLE MAGNESIUM
     Indication: GASTROOESOPHAGEAL REFLUX DISEASE
     Dosage: GENERIC
     Route: 065
     Dates: start: 20180724
  20. NEXIUM [Suspect]
     Active Substance: ESOMEPRAZOLE MAGNESIUM
     Indication: GASTROOESOPHAGEAL REFLUX DISEASE
     Route: 048
     Dates: start: 20130129
  21. PEPCID [Concomitant]
     Active Substance: FAMOTIDINE
  22. JANUVIA [Concomitant]
     Active Substance: SITAGLIPTIN PHOSPHATE
  23. PRILOSEC [Suspect]
     Active Substance: OMEPRAZOLE MAGNESIUM
     Indication: GASTROOESOPHAGEAL REFLUX DISEASE
     Route: 048
     Dates: start: 1990, end: 2019
  24. TAGAMET [Concomitant]
     Active Substance: CIMETIDINE
  25. TUMS [Concomitant]
     Active Substance: CALCIUM CARBONATE
  26. HYDRALAZINE [Concomitant]
     Active Substance: HYDRALAZINE HYDROCHLORIDE
  27. LEXAPRO [Concomitant]
     Active Substance: ESCITALOPRAM OXALATE
  28. AMLODIPINE BESYLATE. [Concomitant]
     Active Substance: AMLODIPINE BESYLATE

REACTIONS (6)
  - Acute kidney injury [Unknown]
  - End stage renal disease [Unknown]
  - Renal failure [Unknown]
  - Chronic kidney disease [Unknown]
  - Nephrogenic anaemia [Unknown]
  - COVID-19 [Fatal]

NARRATIVE: CASE EVENT DATE: 201406
